FAERS Safety Report 5213034-4 (Version None)
Quarter: 2007Q1

REPORT INFORMATION
  Report Type: 
  Country: None (occurrence: None)
  Receive Date: 20070117
  Receipt Date: 20070117
  Transmission Date: 20070707
  Serious: Yes (Hospitalization)
  Sender: FDA-Public Use
  Company Number: None

PATIENT
  Age: 72 Year
  Sex: Male

DRUGS (10)
  1. CIPROFLAXACIN [Suspect]
     Indication: UROSEPSIS
     Route: 042
     Dates: start: 20061105, end: 20061114
  2. ALBUTEROL [Concomitant]
  3. CIPROFLOXACIN/DEXTROSE INJ SOLN [Concomitant]
  4. FLUCONAZOLE INJ, SOLN [Concomitant]
  5. HEPARIN [Concomitant]
  6. INSULIN REGULAR - HUMAN - INJ [Concomitant]
  7. IREATROPIUM BR [Concomitant]
  8. METOCLOPRAMIDE HCL [Concomitant]
  9. METOPROLOL INJ [Concomitant]
  10. ONDANSET [Concomitant]

REACTIONS (4)
  - BLOOD SODIUM DECREASED [None]
  - BLOOD SODIUM INCREASED [None]
  - CREATINE URINE INCREASED [None]
  - DIABETES INSIPIDUS [None]
